FAERS Safety Report 7108076-8 (Version None)
Quarter: 2010Q4

REPORT INFORMATION
  Report Type: 
  Country: None (occurrence: None)
  Receive Date: 20101117
  Receipt Date: 20101115
  Transmission Date: 20110411
  Serious: Yes (Other)
  Sender: FDA-Public Use
  Company Number: US-GILEAD-2010-0032263

PATIENT
  Age: 48 Year
  Sex: Female

DRUGS (15)
  1. LETAIRIS [Suspect]
     Indication: PULMONARY ARTERIAL HYPERTENSION
     Route: 048
     Dates: start: 20100730
  2. ASPIRIN [Concomitant]
  3. FUROSEMIDE [Concomitant]
  4. ADCIRCA [Concomitant]
     Indication: PULMONARY ARTERIAL HYPERTENSION
  5. BENICAR [Concomitant]
  6. ZETIA [Concomitant]
  7. LOVASTATIN [Concomitant]
  8. ADVAIR DISKUS 100/50 [Concomitant]
  9. ALBUTEROL [Concomitant]
  10. NASONEX [Concomitant]
  11. GLIPIZIDE [Concomitant]
  12. METFORMIN HCL [Concomitant]
  13. NAPROXEN [Concomitant]
  14. CELEXA [Concomitant]
  15. CITALOPRAM [Concomitant]

REACTIONS (2)
  - CARDIAC FAILURE CONGESTIVE [None]
  - OEDEMA [None]
